FAERS Safety Report 13504550 (Version 1)
Quarter: 2017Q2

REPORT INFORMATION
  Report Type: Spontaneous
  Country: US (occurrence: US)
  Receive Date: 20170502
  Receipt Date: 20170502
  Transmission Date: 20170830
  Serious: No
  Sender: FDA-Public Use
  Company Number: US-ALLERGAN-2016-001922

PATIENT
  Age: 59 Year
  Sex: Female
  Weight: 79.37 kg

DRUGS (2)
  1. MIRENA [Concomitant]
     Active Substance: LEVONORGESTREL
     Dosage: UNK UNK, UNKNOWN
     Route: 015
  2. FEMRING [Suspect]
     Active Substance: ESTRADIOL ACETATE
     Indication: HORMONE REPLACEMENT THERAPY
     Dosage: 0.10 MG QD; CHANGE EVERY 3 MONTHS
     Route: 067

REACTIONS (1)
  - Drug effect incomplete [Not Recovered/Not Resolved]
